FAERS Safety Report 6630203-7 (Version None)
Quarter: 2010Q1

REPORT INFORMATION
  Report Type: 
  Country: None (occurrence: None)
  Receive Date: 20100311
  Receipt Date: 20100302
  Transmission Date: 20100710
  Serious: Yes (Other)
  Sender: FDA-Public Use
  Company Number: A0839205A

PATIENT
  Age: 81 Year
  Sex: Female

DRUGS (14)
  1. RYTHMOL SR [Suspect]
     Indication: ATRIAL FIBRILLATION
     Dosage: 225MG TWICE PER DAY
     Route: 048
     Dates: start: 20090920
  2. COUMADIN [Concomitant]
  3. DIGOXIN [Concomitant]
  4. INDERAL LA [Concomitant]
  5. LOPID [Concomitant]
  6. METFORMIN [Concomitant]
  7. BENICAR [Concomitant]
  8. NORVASC [Concomitant]
  9. METAMUCIL-2 [Concomitant]
  10. CENTRUM SILVER MV [Concomitant]
  11. ACIDOPHILUS [Concomitant]
  12. PYRIDOXINE HCL [Concomitant]
  13. CALCIUM [Concomitant]
  14. CLARITIN PRN [Concomitant]

REACTIONS (3)
  - ATRIAL FIBRILLATION [None]
  - DRUG INEFFECTIVE [None]
  - RASH [None]
